FAERS Safety Report 8808976 (Version 1)
Quarter: 2012Q4

REPORT INFORMATION
  Report Type: Spontaneous
  Country: US (occurrence: None)
  Receive Date: 20120920
  Receipt Date: 20120920
  Transmission Date: 20130627
  Serious: Yes (Hospitalization)
  Sender: FDA-Public Use
  Company Number: None

PATIENT
  Age: 67 Year
  Sex: Male
  Weight: 74.7 kg

DRUGS (1)
  1. ASPIRIN [Suspect]
     Indication: PAIN
     Dosage: 3 tab every day, PO
     Route: 048
     Dates: start: 20120501, end: 20120508

REACTIONS (3)
  - Blood urea increased [None]
  - Renal tubular necrosis [None]
  - Blood creatinine increased [None]
